FAERS Safety Report 8055024-2 (Version None)
Quarter: 2012Q1

REPORT INFORMATION
  Report Type: 
  Country: None (occurrence: None)
  Receive Date: 20120119
  Receipt Date: 20120112
  Transmission Date: 20120608
  Serious: Yes (Hospitalization, Other)
  Sender: FDA-Public Use
  Company Number: US-PFIZER INC-2011159015

PATIENT
  Sex: Female
  Weight: 19 kg

DRUGS (11)
  1. CHANTIX [Suspect]
     Indication: SMOKING CESSATION THERAPY
     Route: 048
  2. CHANTIX [Suspect]
     Dosage: UNK
     Dates: start: 20110601, end: 20110101
  3. CHANTIX [Suspect]
     Dosage: 1 MG, UNK
     Route: 048
     Dates: start: 20110101, end: 20110101
  4. MORPHINE SULFATE [Suspect]
     Indication: PAIN
     Dosage: UNK
     Dates: start: 20110801, end: 20111101
  5. CHANTIX [Suspect]
     Dosage: UNK
     Route: 048
     Dates: start: 20110101, end: 20111212
  6. DILAUDID [Concomitant]
     Indication: PAIN
     Dosage: 8 MG, EVERY 4 HRS
  7. CHANTIX [Suspect]
     Dosage: UNK
     Route: 048
     Dates: end: 20110101
  8. CHANTIX [Suspect]
     Dosage: 0.5 MG, 1X/DAY
     Route: 048
  9. CHANTIX [Suspect]
     Dosage: 0.5 MG, 2X/DAY
     Route: 048
     Dates: start: 20110101, end: 20110101
  10. PROMETHAZINE [Suspect]
     Indication: NAUSEA
     Dosage: UNK
     Dates: start: 20110101
  11. VALIUM [Concomitant]
     Dosage: UNK

REACTIONS (29)
  - DEPRESSION [None]
  - VITAMIN D DECREASED [None]
  - IRRITABILITY [None]
  - NERVOUSNESS [None]
  - FRUSTRATION [None]
  - NIGHTMARE [None]
  - WHEEZING [None]
  - RESPIRATORY FAILURE [None]
  - DRUG HYPERSENSITIVITY [None]
  - VOMITING [None]
  - FATIGUE [None]
  - HYPOTHYROIDISM [None]
  - SLEEP APNOEA SYNDROME [None]
  - DRUG INEFFECTIVE [None]
  - OXYGEN SATURATION DECREASED [None]
  - BLOOD MAGNESIUM DECREASED [None]
  - MALAISE [None]
  - CONSTIPATION [None]
  - PAIN [None]
  - BURNOUT SYNDROME [None]
  - SOMNOLENCE [None]
  - MANIA [None]
  - PRURITUS [None]
  - NAUSEA [None]
  - PHOBIA [None]
  - MIGRAINE [None]
  - RESTLESSNESS [None]
  - ABNORMAL DREAMS [None]
  - FEELING ABNORMAL [None]
